FAERS Safety Report 4522511-0 (Version None)
Quarter: 2004Q4

REPORT INFORMATION
  Report Type: 
  Country: None (occurrence: None)
  Receive Date: 20041207
  Receipt Date: 20041117
  Transmission Date: 20050328
  Serious: Yes (Other)
  Sender: FDA-Public Use
  Company Number: US_0411108303

PATIENT
  Sex: Male

DRUGS (3)
  1. STRATTERA [Suspect]
     Indication: ATTENTION DEFICIT/HYPERACTIVITY DISORDER
     Dosage: 60 MG DAY
     Dates: start: 20030101
  2. ZOLOFT [Suspect]
     Indication: ATTENTION DEFICIT/HYPERACTIVITY DISORDER
     Dosage: 60 MG DAY
     Dates: start: 20030101
  3. ZOLOFT [Concomitant]

REACTIONS (5)
  - DISTURBANCE IN ATTENTION [None]
  - GASTRIC CANCER [None]
  - HERNIA [None]
  - POST GASTRIC SURGERY SYNDROME [None]
  - WEIGHT DECREASED [None]
